FAERS Safety Report 6690333-0 (Version None)
Quarter: 2010Q2

REPORT INFORMATION
  Report Type: 
  Country: None (occurrence: None)
  Receive Date: 20100421
  Receipt Date: 20100420
  Transmission Date: 20101027
  Serious: Yes (Hospitalization)
  Sender: FDA-Public Use
  Company Number: GB-PERRIGO-10GB008872

PATIENT
  Age: 56 Year
  Sex: Male
  Weight: 113.2 kg

DRUGS (1)
  1. NAPROXEN SODIUM 12063/0055 500 MG [Suspect]
     Indication: RHEUMATOID ARTHRITIS
     Dosage: 500 MG, BID
     Route: 048
     Dates: start: 20100223, end: 20100406

REACTIONS (3)
  - DUODENAL ULCER [None]
  - INCORRECT DRUG ADMINISTRATION DURATION [None]
  - MELAENA [None]
